FAERS Safety Report 20281758 (Version 3)
Quarter: 2022Q1

REPORT INFORMATION
  Report Type: Spontaneous
  Country: IR (occurrence: IR)
  Receive Date: 20220103
  Receipt Date: 20220111
  Transmission Date: 20220423
  Serious: Yes (Hospitalization, Other)
  Sender: FDA-Public Use
  Company Number: IR-ALLERGAN-2144666US

PATIENT
  Sex: Female

DRUGS (5)
  1. MEMANTINE [Interacting]
     Active Substance: MEMANTINE
     Indication: Dementia with Lewy bodies
     Dosage: 5 MG, QD
     Dates: start: 2020
  2. CARBIDOPA\LEVODOPA [Interacting]
     Active Substance: CARBIDOPA\LEVODOPA
     Indication: Dementia with Lewy bodies
     Dosage: 1 DF, BID
     Dates: start: 2020
  3. LAMOTRIGINE [Concomitant]
     Active Substance: LAMOTRIGINE
     Indication: Bipolar I disorder
     Dosage: 300 MG, BID
     Dates: start: 2020
  4. LITHIUM CARBONATE [Concomitant]
     Active Substance: LITHIUM CARBONATE
     Indication: Bipolar I disorder
     Dosage: 300 MG, TID
     Dates: start: 1982
  5. LITHIUM CARBONATE [Concomitant]
     Active Substance: LITHIUM CARBONATE
     Dosage: 300 MG, BID
     Dates: start: 1982

REACTIONS (4)
  - Condition aggravated [Recovering/Resolving]
  - Bipolar I disorder [Recovering/Resolving]
  - Off label use [Unknown]
  - Drug interaction [Unknown]

NARRATIVE: CASE EVENT DATE: 20200101
